FAERS Safety Report 5655790-7 (Version None)
Quarter: 2008Q1

REPORT INFORMATION
  Report Type: 
  Country: None (occurrence: None)
  Receive Date: 20080307
  Receipt Date: 20080225
  Transmission Date: 20080703
  Serious: Yes (Other)
  Sender: FDA-Public Use
  Company Number: US-PFIZER INC-2008017835

PATIENT
  Sex: Female

DRUGS (8)
  1. NORVASC [Suspect]
     Indication: BLOOD PRESSURE
  2. SUTENT [Suspect]
     Indication: RENAL CELL CARCINOMA
  3. ZOMETA [Suspect]
     Indication: BONE DISORDER
     Route: 042
  4. VALIUM [Concomitant]
     Dosage: TEXT:5 TO 10 MG
  5. HERBAL PREPARATION [Concomitant]
  6. ASPIRIN [Concomitant]
  7. GENERAL NUTRIENTS/HERBAL NOS/MINERALS NOS/VITAMINS NOS [Concomitant]
  8. UBIDECARENONE [Concomitant]

REACTIONS (6)
  - BLOOD CREATININE INCREASED [None]
  - CONSTIPATION [None]
  - DIARRHOEA [None]
  - HYPERTENSION [None]
  - NAUSEA [None]
  - VOMITING [None]
